FAERS Safety Report 9547116 (Version 2)
Quarter: 2013Q3

REPORT INFORMATION
  Report Type: Report from Study
  Country: CA (occurrence: CA)
  Receive Date: 20130924
  Receipt Date: 20130930
  Transmission Date: 20140515
  Serious: Yes (Other)
  Sender: FDA-Public Use
  Company Number: PHHY2013CA105725

PATIENT
  Sex: Male

DRUGS (5)
  1. CLOZARIL [Suspect]
     Indication: PSYCHOTIC DISORDER
     Dosage: 300 MG, DAILY
     Route: 048
     Dates: start: 20030409
  2. CLONAZEPAM [Concomitant]
     Dosage: 1 MG, QD
  3. LORAZEPAM [Concomitant]
     Dosage: 1 MG, TID
     Route: 048
  4. PANTOPRAZOLE [Concomitant]
     Dosage: 40 MG, QD
     Route: 048
  5. SULFAMETOXAZOL/TRIMETOPRIM [Concomitant]
     Dosage: 1 DF, BID
     Route: 048

REACTIONS (4)
  - Crohn^s disease [Recovering/Resolving]
  - Red blood cell count decreased [Recovering/Resolving]
  - White blood cell count decreased [Recovering/Resolving]
  - Lymphocyte count decreased [Recovering/Resolving]
